FAERS Safety Report 6212726-8 (Version None)
Quarter: 2009Q2

REPORT INFORMATION
  Report Type: 
  Country: None (occurrence: None)
  Receive Date: 20090603
  Receipt Date: 20090528
  Transmission Date: 20091009
  Serious: Yes (Hospitalization)
  Sender: FDA-Public Use
  Company Number: US-BRISTOL-MYERS SQUIBB COMPANY-14628804

PATIENT
  Age: 59 Year
  Sex: Male
  Weight: 67 kg

DRUGS (3)
  1. CETUXIMAB [Suspect]
     Indication: TONGUE NEOPLASM MALIGNANT STAGE UNSPECIFIED
     Dosage: INITIAL DOSE ON 13APR2009.
     Dates: start: 20090413, end: 20090508
  2. CISPLATIN [Suspect]
     Indication: TONGUE NEOPLASM MALIGNANT STAGE UNSPECIFIED
     Dosage: INITIAL DOSE 13APR2009.
     Dates: start: 20090413, end: 20090508
  3. RADIOTHERAPY [Suspect]

REACTIONS (8)
  - BLOOD CULTURE POSITIVE [None]
  - CATHETER SITE INFECTION [None]
  - DEHYDRATION [None]
  - FATIGUE [None]
  - HYPOTENSION [None]
  - PAIN [None]
  - STOMATITIS [None]
  - WEIGHT DECREASED [None]
